FAERS Safety Report 8477970-8 (Version None)
Quarter: 2012Q2

REPORT INFORMATION
  Report Type: 
  Country: None (occurrence: None)
  Receive Date: 20120629
  Receipt Date: 20120618
  Transmission Date: 20120825
  Serious: Yes (Hospitalization)
  Sender: FDA-Public Use
  Company Number: FR-BRISTOL-MYERS SQUIBB COMPANY-16709958

PATIENT
  Age: 42 Year
  Sex: Female

DRUGS (4)
  1. ERBITUX [Suspect]
     Indication: COLORECTAL CANCER
     Route: 042
     Dates: start: 20120322, end: 20120504
  2. OXALIPLATIN [Suspect]
     Indication: COLORECTAL CANCER
     Route: 042
     Dates: start: 20120322, end: 20120504
  3. LEUCOVORIN CALCIUM [Suspect]
     Indication: COLORECTAL CANCER
     Dosage: 175MG  POWDER FOR SOLN FOR INJ
     Route: 042
     Dates: start: 20120322, end: 20120504
  4. FLUOROURACIL [Suspect]
     Indication: COLORECTAL CANCER
     Dosage: DAY 1 BOLUS, DAY  1 AND 2, 2 DAYS WITH INFUSOR
     Route: 042
     Dates: start: 20120322, end: 20120504

REACTIONS (1)
  - HAEMATURIA [None]
